FAERS Safety Report 18598490 (Version 1)
Quarter: 2020Q4

REPORT INFORMATION
  Report Type: Spontaneous
  Country: US (occurrence: US)
  Receive Date: 20201210
  Receipt Date: 20201210
  Transmission Date: 20210114
  Serious: Yes (Hospitalization, Other)
  Sender: FDA-Public Use
  Company Number: US-LUPIN PHARMACEUTICALS INC.-2020-10038

PATIENT
  Age: 57 Year
  Sex: Male

DRUGS (1)
  1. SILDENAFIL TABLETS [Suspect]
     Active Substance: SILDENAFIL
     Indication: SUPPLEMENTATION THERAPY
     Dosage: UNK, V8 SUPPLEMENT CONTAINED SILDENAFIL IN TABLET ROUGHLY AT A THERAPEUTIC DOSE.
     Route: 065

REACTIONS (2)
  - Hypoglycaemia [Unknown]
  - Intentional product misuse [Unknown]

NARRATIVE: CASE EVENT DATE: 2019
